FAERS Safety Report 14155716 (Version 2)
Quarter: 2017Q4

REPORT INFORMATION
  Report Type: Report from Study
  Country: IL (occurrence: IL)
  Receive Date: 20171103
  Receipt Date: 20171112
  Transmission Date: 20180321
  Serious: Yes (Other)
  Sender: FDA-Public Use
  Company Number: IL-CONCORDIA PHARMACEUTICALS INC.-GSH201711-006165

PATIENT
  Age: 46 Year
  Sex: Female

DRUGS (19)
  1. PLAQUENIL [Suspect]
     Active Substance: HYDROXYCHLOROQUINE SULFATE
     Dosage: 200?400 MG; ACCORDING TO PHYSICIAN RECOMMENDATION
     Route: 065
  2. PLAQUENIL [Suspect]
     Active Substance: HYDROXYCHLOROQUINE SULFATE
     Dosage: 3 ML OF 2 MG/ML HYDROXYCHLOROQUINE (6 MG PER DAY)-ON DAY 3  FOR STAGE 2
     Route: 065
  3. PLAQUENIL [Suspect]
     Active Substance: HYDROXYCHLOROQUINE SULFATE
     Dosage: 2 ML OF 0.1MG/ML HYDROXYCHLOROQUINE SULFATE ON DAY 2
     Route: 065
  4. PLAQUENIL [Suspect]
     Active Substance: HYDROXYCHLOROQUINE SULFATE
     Indication: SYSTEMIC LUPUS ERYTHEMATOSUS
     Route: 065
  5. PLAQUENIL [Suspect]
     Active Substance: HYDROXYCHLOROQUINE SULFATE
     Dosage: 4 ML OF 0.1MG/ML HYDROXYCHLOROQUINE ON DAY 3
     Route: 065
  6. PLAQUENIL [Suspect]
     Active Substance: HYDROXYCHLOROQUINE SULFATE
     Dosage: 10 ML OF 0.1MG/ML HYDROXYCHLOROQUINE (1MG PER DAY)-ON DAY 5 TO 11-15
     Route: 065
  7. PLAQUENIL [Suspect]
     Active Substance: HYDROXYCHLOROQUINE SULFATE
     Dosage: 1 ML OF 2 MG/ML HYDROXYCHLOROQUINE (2 MG PER DAY)-ON DAY 1 FOR STAGE 2
     Route: 065
  8. PLAQUENIL [Suspect]
     Active Substance: HYDROXYCHLOROQUINE SULFATE
     Dosage: 40 ML OF 2 MG/ML HYDROXYCHLOROQUINE (80 MG PER DAY)-ON DAY 14  FOR STAGE 2
     Route: 065
  9. PLAQUENIL [Suspect]
     Active Substance: HYDROXYCHLOROQUINE SULFATE
     Dosage: 8 ML OF 0.1MG/ML HYDROXYCHLOROQUINE ON DAY 4
     Route: 065
  10. PLAQUENIL [Suspect]
     Active Substance: HYDROXYCHLOROQUINE SULFATE
     Dosage: 4 ML OF 2 MG/ML HYDROXYCHLOROQUINE (8 MG PER DAY)-ON DAY 4 FOR STAGE 2
     Route: 065
  11. PLAQUENIL [Suspect]
     Active Substance: HYDROXYCHLOROQUINE SULFATE
     Dosage: 5 ML OF 2 MG/ML HYDROXYCHLOROQUINE (10 MG PER DAY)-ON DAY 5-11 FOR STAGE 2
     Route: 065
  12. PREDNISONE. [Concomitant]
     Active Substance: PREDNISONE
     Dosage: PREDNISONE AT DOSES OF 5 MG OR LESS
  13. PLAQUENIL [Suspect]
     Active Substance: HYDROXYCHLOROQUINE SULFATE
     Dosage: RE-CHALLENGE OF HYDROXYCHLOROQUINE
     Route: 065
  14. PLAQUENIL [Suspect]
     Active Substance: HYDROXYCHLOROQUINE SULFATE
     Dosage: 2 ML OF 2 MG/ML HYDROXYCHLOROQUINE (4 MG PER DAY)-ON DAY 2  FOR STAGE 2
     Route: 065
  15. PLAQUENIL [Suspect]
     Active Substance: HYDROXYCHLOROQUINE SULFATE
     Dosage: 20 ML OF 2 MG/ML HYDROXYCHLOROQUINE (40 MG PER DAY)-ON DAY 13  FOR STAGE 2
     Route: 065
  16. PLAQUENIL [Suspect]
     Active Substance: HYDROXYCHLOROQUINE SULFATE
     Dosage: 200 MG HYDROXYCHLOROQUINE 1 TABLET (200 MG PER DAY)-ON DAY 22-26  FOR STAGE 2
     Route: 065
  17. PLAQUENIL [Suspect]
     Active Substance: HYDROXYCHLOROQUINE SULFATE
     Dosage: 1ML OF 0.1MG/ML ON DAY 1
     Route: 065
  18. PLAQUENIL [Suspect]
     Active Substance: HYDROXYCHLOROQUINE SULFATE
     Dosage: 10 ML OF 2 MG/ML HYDROXYCHLOROQUINE (20 MG PER DAY)-ON DAY 12  FOR STAGE 2
     Route: 065
  19. PLAQUENIL [Suspect]
     Active Substance: HYDROXYCHLOROQUINE SULFATE
     Dosage: 100 MG HYDROXYCHLOROQUINE 0.5 TABLET (100 MG PER DAY)-ON DAY 15-21  FOR STAGE 2
     Route: 065

REACTIONS (5)
  - Angioedema [Recovered/Resolved]
  - Urticaria [Recovered/Resolved]
  - Treatment failure [Unknown]
  - Hypersensitivity [Recovered/Resolved]
  - Dyspnoea [Recovered/Resolved]
